FAERS Safety Report 9814613 (Version 2)
Quarter: 2014Q1

REPORT INFORMATION
  Report Type: Spontaneous
  Country: GB (occurrence: GB)
  Receive Date: 20140113
  Receipt Date: 20140204
  Transmission Date: 20141002
  Serious: Yes (Other)
  Sender: FDA-Public Use
  Company Number: PHFR2014GB000589

PATIENT
  Age: 70 Year
  Sex: Female

DRUGS (4)
  1. CLOZARIL [Suspect]
     Dosage: UNK
     Route: 048
     Dates: start: 20010701, end: 20131216
  2. LITHIUM [Concomitant]
     Dosage: UNK UKN, UNK
     Route: 048
  3. TRIMETHOPRIM [Concomitant]
     Dosage: UNK UKN, UNK
     Route: 048
  4. DOCUSATE [Concomitant]
     Dosage: UNK UKN, UNK
     Route: 048

REACTIONS (6)
  - Cerebrovascular accident [Unknown]
  - Schizophrenia [Not Recovered/Not Resolved]
  - Infection [Unknown]
  - Decubitus ulcer [Recovering/Resolving]
  - Lower respiratory tract infection [Recovered/Resolved]
  - Pyrexia [Recovered/Resolved]
